FAERS Safety Report 8216288-5 (Version None)
Quarter: 2012Q1

REPORT INFORMATION
  Report Type: 
  Country: None (occurrence: None)
  Receive Date: 20120316
  Receipt Date: 20120302
  Transmission Date: 20120608
  Serious: Yes (Hospitalization)
  Sender: FDA-Public Use
  Company Number: PHHY2012IE022786

PATIENT
  Age: 2 Year
  Sex: Male

DRUGS (1)
  1. CLOZARIL [Suspect]
     Dosage: 100 MG, UNK
     Route: 048
     Dates: start: 20120302

REACTIONS (3)
  - ACCIDENTAL DRUG INTAKE BY CHILD [None]
  - DECREASED APPETITE [None]
  - SOMNOLENCE [None]
